FAERS Safety Report 4610714-6 (Version None)
Quarter: 2005Q2

REPORT INFORMATION
  Report Type: 
  Country: None (occurrence: None)
  Receive Date: 20050228
  Receipt Date: 20040318
  Transmission Date: 20051028
  Serious: Yes (Hospitalization)
  Sender: FDA-Public Use
  Company Number: 205351

PATIENT
  Age: 13 Year
  Sex: Female
  Weight: 38.7 kg

DRUGS (3)
  1. NUTROPIN AQ [Suspect]
     Indication: TURNER'S SYNDROME
     Dosage: 1.6MG, QD, SUBCUTANEOUS
     Route: 058
     Dates: start: 20030213
  2. ALLEGRA [Concomitant]
  3. NON-STEROIDAL ANTI-INFLAMMATORY DRUGS [Concomitant]

REACTIONS (1)
  - SLIPPED FEMORAL EPIPHYSIS [None]
